FAERS Safety Report 8112720-6 (Version None)
Quarter: 2012Q1

REPORT INFORMATION
  Report Type: 
  Country: None (occurrence: None)
  Receive Date: 20120203
  Receipt Date: 20120126
  Transmission Date: 20120608
  Serious: Yes (Hospitalization, Other)
  Sender: FDA-Public Use
  Company Number: JP-CELGENEUS-087-50794-12013223

PATIENT
  Sex: Female
  Weight: 64 kg

DRUGS (22)
  1. GLAKAY [Concomitant]
     Route: 065
     Dates: end: 20110904
  2. ALFAROL [Concomitant]
     Route: 065
     Dates: end: 20110904
  3. PURSENNID [Concomitant]
     Route: 065
  4. MAGNESIUM SULFATE [Concomitant]
     Route: 065
  5. VIDAZA [Suspect]
     Dosage: 75 MILLIGRAM/SQ. METER
     Route: 041
     Dates: start: 20110802, end: 20110808
  6. VFEND [Concomitant]
     Route: 065
     Dates: start: 20111115, end: 20111121
  7. CIPROFLOXACIN [Concomitant]
     Route: 065
     Dates: start: 20110901, end: 20111003
  8. MUCODYNE [Concomitant]
     Route: 065
     Dates: start: 20111108, end: 20111122
  9. VIDAZA [Suspect]
     Dosage: 37.5 MILLIGRAM/SQ. METER
     Route: 041
     Dates: start: 20110923, end: 20110929
  10. COLDRIN [Concomitant]
     Route: 065
     Dates: start: 20111108, end: 20111122
  11. NEO-MINOPHAGEN C [Concomitant]
     Route: 065
     Dates: start: 20111128, end: 20111130
  12. ADONA [Concomitant]
     Route: 065
  13. VIDAZA [Suspect]
     Dosage: 37.5 MILLIGRAM/SQ. METER
     Route: 041
     Dates: start: 20111027, end: 20111102
  14. NORVASC [Concomitant]
     Route: 065
     Dates: end: 20110823
  15. TRANEXAMIC ACID [Concomitant]
     Route: 065
     Dates: start: 20111011, end: 20111027
  16. SULFAMETHOXAZOLE [Concomitant]
     Route: 065
     Dates: start: 20111109, end: 20111115
  17. URSO 250 [Concomitant]
     Route: 065
     Dates: start: 20111108, end: 20111122
  18. CODEINE PHOSPHATE [Concomitant]
     Route: 065
     Dates: start: 20111112
  19. LASIX [Concomitant]
     Route: 065
  20. ALOSENN [Concomitant]
     Route: 065
  21. ALLEGRA [Concomitant]
     Route: 065
     Dates: start: 20111127, end: 20111205
  22. CEFAMEZIN ALPHA [Concomitant]
     Route: 065
     Dates: start: 20111201, end: 20111208

REACTIONS (4)
  - SEPSIS [None]
  - EPISTAXIS [None]
  - CELLULITIS [None]
  - MYELODYSPLASTIC SYNDROME [None]
